FAERS Safety Report 26115635 (Version 1)
Quarter: 2025Q4

REPORT INFORMATION
  Report Type: Spontaneous
  Country: US (occurrence: US)
  Receive Date: 20251203
  Receipt Date: 20251203
  Transmission Date: 20260118
  Serious: No
  Sender: STRIDES
  Company Number: US-STRIDES ARCOLAB LIMITED-2025SP013197

PATIENT
  Age: 23 Year
  Sex: Male

DRUGS (8)
  1. IBUPROFEN [Suspect]
     Active Substance: IBUPROFEN
     Indication: Folliculitis
     Dosage: 400 MILLIGRAM, TID
     Route: 065
  2. HYDROCORTISONE [Suspect]
     Active Substance: HYDROCORTISONE
     Indication: Pain
     Dosage: UNK, BID,CREAM
     Route: 065
  3. HYDROCORTISONE [Suspect]
     Active Substance: HYDROCORTISONE
     Indication: Pruritus
  4. HYDROCORTISONE [Suspect]
     Active Substance: HYDROCORTISONE
     Indication: Inflammation
  5. DIPHENHYDRAMINE [Suspect]
     Active Substance: DIPHENHYDRAMINE
     Indication: Folliculitis
     Dosage: 25 MILLIGRAM, AT BED TIME
     Route: 065
  6. MUPIROCIN [Suspect]
     Active Substance: MUPIROCIN
     Indication: Pain
     Dosage: UNK UNK, BID
     Route: 061
  7. MUPIROCIN [Suspect]
     Active Substance: MUPIROCIN
     Indication: Pruritus
  8. MUPIROCIN [Suspect]
     Active Substance: MUPIROCIN
     Indication: Inflammation

REACTIONS (2)
  - Infection [Unknown]
  - Drug ineffective [Unknown]
